FAERS Safety Report 5749108-9 (Version None)
Quarter: 2008Q2

REPORT INFORMATION
  Report Type: 
  Country: None (occurrence: None)
  Receive Date: 20080522
  Receipt Date: 20080508
  Transmission Date: 20081010
  Serious: Yes (Death, Hospitalization)
  Sender: FDA-Public Use
  Company Number: 2008001094

PATIENT
  Age: 68 Year
  Sex: Male

DRUGS (9)
  1. TARCEVA [Suspect]
     Indication: LUNG ADENOCARCINOMA METASTATIC
     Dosage: (150 MG, QD), ORAL
     Route: 048
     Dates: start: 20080120, end: 20080211
  2. VALSARTAN [Concomitant]
  3. ASPEGIC 1000 [Concomitant]
  4. BISOPROLOL FUMARATE [Concomitant]
  5. CORVASAL (MOLSIDOMINE) [Concomitant]
  6. PREDNISOLONE [Concomitant]
  7. ACTISKENAN (MORPHINE) [Concomitant]
  8. LYRICA [Concomitant]
  9. INNOHEP [Concomitant]

REACTIONS (16)
  - ABDOMINAL PAIN [None]
  - DEHYDRATION [None]
  - DIARRHOEA [None]
  - FALL [None]
  - GASTROINTESTINAL PERFORATION [None]
  - GENERAL PHYSICAL HEALTH DETERIORATION [None]
  - HYPOKALAEMIA [None]
  - HYPOTENSION [None]
  - HYPOTHERMIA [None]
  - HYPOVOLAEMIA [None]
  - INFECTION [None]
  - MALAISE [None]
  - NEUTROPENIA [None]
  - RENAL FAILURE ACUTE [None]
  - SEPTIC SHOCK [None]
  - WEIGHT DECREASED [None]
